FAERS Safety Report 20778524 (Version 2)
Quarter: 2023Q2

REPORT INFORMATION
  Report Type: Spontaneous
  Country: US (occurrence: US)
  Receive Date: 20220503
  Receipt Date: 20230608
  Transmission Date: 20230721
  Serious: Yes (Death, Hospitalization)
  Sender: FDA-Public Use
  Company Number: US-AMNEAL PHARMACEUTICALS-2021-AMRX-01348

PATIENT
  Sex: Female
  Weight: 151.97 kg

DRUGS (2)
  1. VIGABATRIN [Suspect]
     Active Substance: VIGABATRIN
     Indication: Congenital cerebral cyst
     Dosage: 15 MILLILITER, 2 /DAY
     Route: 065
  2. VIGABATRIN [Suspect]
     Active Substance: VIGABATRIN
     Indication: Seizure
     Dosage: 500 MG, MIX 2 PACKETS IN 20 ML OF WATER AND GIVE/TAKE 15 ML (750 MG) TWICE A DAY. DISCARD 5 ML WITH
     Route: 065

REACTIONS (2)
  - Adverse event [Fatal]
  - Respiratory disorder [Unknown]

NARRATIVE: CASE EVENT DATE: 20210101
